FAERS Safety Report 7861186-X (Version None)
Quarter: 2011Q4

REPORT INFORMATION
  Report Type: 
  Country: None (occurrence: None)
  Receive Date: 20111027
  Receipt Date: 20111021
  Transmission Date: 20120403
  Serious: Yes (Hospitalization)
  Sender: FDA-Public Use
  Company Number: US-ABBOTT-11P-163-0867535-00

PATIENT
  Sex: Male
  Weight: 81.72 kg

DRUGS (7)
  1. HUMIRA [Suspect]
     Indication: RHEUMATOID ARTHRITIS
     Dates: start: 20110801
  2. FLUOXETINE HCL [Concomitant]
     Indication: DEPRESSION
  3. GABAPENTIN [Concomitant]
     Indication: MIGRAINE
  4. CALCIUM CARBONATE [Concomitant]
     Indication: MINERAL SUPPLEMENTATION
  5. MULTIPLE VITAMINS [Concomitant]
     Indication: VITAMIN SUPPLEMENTATION
  6. PRILOSEC [Concomitant]
     Indication: GASTROOESOPHAGEAL REFLUX DISEASE
  7. LUEFLONAMIDE [Concomitant]
     Indication: RHEUMATOID ARTHRITIS

REACTIONS (4)
  - FATIGUE [None]
  - VASCULITIS [None]
  - CORONARY ARTERY OCCLUSION [None]
  - SLUGGISHNESS [None]
